FAERS Safety Report 11126038 (Version 2)
Quarter: 2015Q2

REPORT INFORMATION
  Report Type: Spontaneous
  Country: US (occurrence: US)
  Receive Date: 20150520
  Receipt Date: 20150616
  Transmission Date: 20150821
  Serious: Yes (Hospitalization, Other)
  Sender: FDA-Public Use
  Company Number: US-009507513-1112USA02651

PATIENT
  Sex: Female

DRUGS (4)
  1. ALENDRONATE SODIUM. [Suspect]
     Active Substance: ALENDRONATE SODIUM
     Indication: BONE DENSITY DECREASED
     Dosage: 70 MG, QW
     Route: 048
     Dates: start: 20080911, end: 20100126
  2. FOSAMAX [Suspect]
     Active Substance: ALENDRONATE SODIUM
     Route: 048
  3. FOSAMAX [Suspect]
     Active Substance: ALENDRONATE SODIUM
     Indication: BONE DENSITY DECREASED
     Dosage: UNK
     Route: 048
     Dates: start: 200505, end: 200608
  4. ACTONEL [Suspect]
     Active Substance: RISEDRONATE SODIUM
     Indication: BONE DENSITY DECREASED
     Dosage: 35 MG, QW
     Route: 048
     Dates: start: 20060928, end: 20080724

REACTIONS (23)
  - Intramedullary rod insertion [Unknown]
  - Bone graft [Unknown]
  - Medical device removal [Unknown]
  - Femur fracture [Unknown]
  - Medical device complication [Unknown]
  - Rotator cuff syndrome [Unknown]
  - Fall [Unknown]
  - Rotator cuff repair [Unknown]
  - Hypertension [Unknown]
  - Breast lump removal [Unknown]
  - Hysterectomy [Unknown]
  - Open reduction of fracture [Unknown]
  - Surgery [Unknown]
  - Foot operation [Unknown]
  - Foot deformity [Unknown]
  - Fracture nonunion [Unknown]
  - Asthma [Unknown]
  - Hypercholesterolaemia [Unknown]
  - Osteoarthritis [Unknown]
  - Toe operation [Unknown]
  - Gastrooesophageal reflux disease [Unknown]
  - Surgery [Unknown]
  - Joint dislocation [Unknown]

NARRATIVE: CASE EVENT DATE: 200608
